FAERS Safety Report 4523283-6 (Version None)
Quarter: 2004Q4

REPORT INFORMATION
  Report Type: 
  Country: None (occurrence: None)
  Receive Date: 20041210
  Receipt Date: 20041129
  Transmission Date: 20050328
  Serious: Yes (Death, Life-Threatening, Other)
  Sender: FDA-Public Use
  Company Number: GB-JNJFOC-20040806925

PATIENT
  Sex: Male
  Weight: 66 kg

DRUGS (7)
  1. REMICADE [Suspect]
     Indication: RHEUMATOID ARTHRITIS
     Route: 042
  2. METHOTREXATE [Concomitant]
  3. MOBIC [Concomitant]
  4. FOLIC ACID [Concomitant]
  5. CODYDRAMOL [Concomitant]
  6. CODYDRAMOL [Concomitant]
  7. PREDNISOLONE [Concomitant]

REACTIONS (1)
  - DEATH [None]
